FAERS Safety Report 14675081 (Version 1)
Quarter: 2018Q1

REPORT INFORMATION
  Report Type: Spontaneous
  Country: GR (occurrence: GR)
  Receive Date: 20180323
  Receipt Date: 20180323
  Transmission Date: 20180509
  Serious: Yes (Hospitalization)
  Sender: FDA-Public Use
  Company Number: GR-OREXIGEN THERAPEUTICS, INC.-2044418

PATIENT
  Age: 46 Year
  Sex: Male

DRUGS (3)
  1. DAPAGLIFLOZIN PROPANEDIOL MONOHYDRATE [Concomitant]
     Active Substance: DAPAGLIFLOZIN PROPANEDIOL
     Route: 048
  2. CONTRAVE [Suspect]
     Active Substance: BUPROPION HYDROCHLORIDE\NALTREXONE HYDROCHLORIDE
     Route: 048
     Dates: start: 201802, end: 201802
  3. CONTRAVE [Suspect]
     Active Substance: BUPROPION HYDROCHLORIDE\NALTREXONE HYDROCHLORIDE
     Indication: PRODUCT USED FOR UNKNOWN INDICATION
     Route: 048
     Dates: start: 201802, end: 201802

REACTIONS (5)
  - Discomfort [Recovering/Resolving]
  - Flatulence [Recovering/Resolving]
  - Abdominal pain [Recovering/Resolving]
  - Nausea [Recovering/Resolving]
  - Hyperhidrosis [Recovering/Resolving]

NARRATIVE: CASE EVENT DATE: 201802
